FAERS Safety Report 25074603 (Version 1)
Quarter: 2025Q1

REPORT INFORMATION
  Report Type: Spontaneous
  Country: PR (occurrence: PR)
  Receive Date: 20250313
  Receipt Date: 20250313
  Transmission Date: 20250409
  Serious: No
  Sender: BRISTOL-MYERS SQUIBB COMPANY
  Company Number: PR-BRISTOL-MYERS SQUIBB COMPANY-2025-037984

PATIENT
  Age: 80 Year
  Sex: Female
  Weight: 77.56 kg

DRUGS (1)
  1. POMALYST [Suspect]
     Active Substance: POMALIDOMIDE
     Indication: Plasma cell myeloma
     Route: 048
     Dates: start: 202305

REACTIONS (1)
  - Hypersensitivity [Not Recovered/Not Resolved]

NARRATIVE: CASE EVENT DATE: 20250201
